FAERS Safety Report 8951680 (Version 1)
Quarter: 2012Q4

REPORT INFORMATION
  Report Type: 
  Country: IT (occurrence: IT)
  Receive Date: 20121204
  Receipt Date: 20121204
  Transmission Date: 20130627
  Serious: Yes (Hospitalization)
  Sender: FDA-Public Use
  Company Number: PHHY2012IT110211

PATIENT
  Sex: Male

DRUGS (7)
  1. FUROSEMIDE [Suspect]
     Indication: HYPERTENSION
     Dosage: 25 mg, QD
     Route: 048
     Dates: start: 20120101, end: 20121002
  2. BISOPROLOL [Suspect]
     Indication: HYPERTENSION
     Dosage: 2.5 mg, QD
     Route: 048
     Dates: start: 20120101, end: 20121002
  3. KCL [Suspect]
     Indication: HYPOKALAEMIA
     Dosage: 1 DF, QD
     Route: 048
     Dates: start: 20120101, end: 20121002
  4. ALDACTONE [Suspect]
     Indication: HYPERTENSION
     Dosage: 1 DF, QD
     Route: 048
     Dates: start: 20120101, end: 20121002
  5. CARDIOASPIRIN [Concomitant]
     Indication: MYOCARDIAL ISCHAEMIA
  6. COUMADIN ^BOOTS^ [Concomitant]
     Indication: ATRIAL FIBRILLATION
  7. PANTORC [Concomitant]

REACTIONS (2)
  - Renal failure acute [Recovering/Resolving]
  - Hyperkalaemia [Recovering/Resolving]
